FAERS Safety Report 6254607-X (Version None)
Quarter: 2009Q3

REPORT INFORMATION
  Report Type: 
  Country: None (occurrence: None)
  Receive Date: 20090702
  Receipt Date: 20090623
  Transmission Date: 20100115
  Serious: Yes (Hospitalization)
  Sender: FDA-Public Use
  Company Number: A0794821A

PATIENT
  Age: 57 Year
  Sex: Male

DRUGS (1)
  1. AVANDIA [Suspect]
     Dates: start: 20020510, end: 20070503

REACTIONS (3)
  - GAIT DISTURBANCE [None]
  - HYPERTENSION [None]
  - MYOCARDIAL INFARCTION [None]
